FAERS Safety Report 6663250-X (Version None)
Quarter: 2010Q2

REPORT INFORMATION
  Report Type: 
  Country: None (occurrence: None)
  Receive Date: 20100401
  Receipt Date: 20100330
  Transmission Date: 20101027
  Serious: Yes (Life-Threatening)
  Sender: FDA-Public Use
  Company Number: JP-BAYER-201011575BYL

PATIENT
  Age: 89 Year
  Sex: Female

DRUGS (2)
  1. CIPROXAN-I.V. [Suspect]
     Indication: PNEUMONIA
     Dosage: TOTAL DAILY DOSE: 300 MG  UNIT DOSE: 300 MG
     Route: 041
     Dates: start: 20091225, end: 20091230
  2. SEISHOKU [Concomitant]
     Dosage: TOTAL DAILY DOSE: 100 ML
     Route: 041
     Dates: start: 20091225, end: 20091230

REACTIONS (2)
  - CARDIAC FAILURE [None]
  - HEPATIC FUNCTION ABNORMAL [None]
